FAERS Safety Report 12424734 (Version 2)
Quarter: 2016Q2

REPORT INFORMATION
  Report Type: Report from Study
  Country: US (occurrence: US)
  Receive Date: 20160601
  Receipt Date: 20160614
  Transmission Date: 20160815
  Serious: Yes (Other)
  Sender: FDA-Public Use
  Company Number: US-BAYER-2016-089215

PATIENT
  Age: 63 Year
  Sex: Female

DRUGS (3)
  1. ADEMPAS [Suspect]
     Active Substance: RIOCIGUAT
     Indication: PULMONARY ARTERIAL HYPERTENSION
     Dosage: 1.0 MG, TID
     Route: 048
  2. ADEMPAS [Suspect]
     Active Substance: RIOCIGUAT
     Indication: PULMONARY ARTERIAL HYPERTENSION
     Dosage: 1.5 MG, TID
     Route: 048
     Dates: start: 20160524
  3. ADEMPAS [Suspect]
     Active Substance: RIOCIGUAT
     Indication: PULMONARY ARTERIAL HYPERTENSION
     Dosage: 0.5 MG, TID
     Route: 048
     Dates: start: 20160415

REACTIONS (16)
  - Dizziness [None]
  - Dizziness [None]
  - Lacrimation increased [None]
  - Asthenia [None]
  - Amnesia [None]
  - Drug dose omission [None]
  - Headache [None]
  - Urinary tract infection [None]
  - Thinking abnormal [None]
  - Hypotension [None]
  - Tremor [None]
  - Dizziness [None]
  - Tremor [None]
  - Back disorder [None]
  - Rhinorrhoea [None]
  - Peripheral swelling [None]

NARRATIVE: CASE EVENT DATE: 20160421
